FAERS Safety Report 19855029 (Version 1)
Quarter: 2021Q3

REPORT INFORMATION
  Report Type: Spontaneous
  Country: US (occurrence: US)
  Receive Date: 20210916
  Receipt Date: 20210916
  Transmission Date: 20211014
  Serious: Yes (Hospitalization)
  Sender: FDA-Public Use
  Company Number: None

PATIENT
  Sex: Female

DRUGS (1)
  1. STELARA [Suspect]
     Active Substance: USTEKINUMAB
     Dosage: ?          OTHER FREQUENCY:Q 12 WKS;?
     Dates: start: 20200616

REACTIONS (6)
  - Intestinal obstruction [None]
  - Product dose omission issue [None]
  - Gastrooesophageal reflux disease [None]
  - Psoriatic arthropathy [None]
  - COVID-19 [None]
  - Psychomotor hyperactivity [None]
